FAERS Safety Report 9556355 (Version 2)
Quarter: 2013Q4

REPORT INFORMATION
  Report Type: Spontaneous
  Country: DE (occurrence: DE)
  Receive Date: 20130926
  Receipt Date: 20131001
  Transmission Date: 20140711
  Serious: Yes (Hospitalization)
  Sender: FDA-Public Use
  Company Number: DE-AMGEN-DEUSP2013067370

PATIENT
  Age: 53 Year
  Sex: Female
  Weight: 87.98 kg

DRUGS (5)
  1. NEULASTA [Suspect]
     Indication: CHEMOTHERAPY
     Dosage: 6 MG, 1 IN 14 DAYS
     Route: 058
     Dates: start: 20130918, end: 20130918
  2. EPIRUBICIN [Suspect]
     Indication: BREAST CANCER
     Dosage: 255 MG, Q14D
     Route: 042
     Dates: start: 20130806, end: 20130913
  3. PACLITAXEL ALBUMIN [Suspect]
     Indication: BREAST CANCER
     Dosage: 560 MG, Q14D
     Route: 042
     Dates: start: 20130917, end: 20130917
  4. DEXAMETHASON                       /00016001/ [Concomitant]
     Dosage: 4 MG, UNK
     Dates: start: 20130917, end: 20130917
  5. GRANISETRON [Concomitant]
     Dosage: 2 MG, UNK
     Dates: start: 20130917, end: 20130917

REACTIONS (1)
  - Pain [Recovered/Resolved]
